FAERS Safety Report 9491946 (Version 1)
Quarter: 2013Q3

REPORT INFORMATION
  Report Type: Spontaneous
  Country: US (occurrence: US)
  Receive Date: 20130830
  Receipt Date: 20130830
  Transmission Date: 20140515
  Serious: No
  Sender: FDA-Public Use
  Company Number: US-PFIZER INC-2013251021

PATIENT
  Age: 78 Year
  Sex: Male
  Weight: 74.83 kg

DRUGS (4)
  1. ALTACE [Suspect]
     Indication: CARDIAC DISORDER
     Dosage: 10MG TWO TIMES A DAY
     Dates: start: 1996
  2. NIACIN [Concomitant]
     Indication: CARDIAC DISORDER
     Dosage: UNK
  3. LASIX [Concomitant]
     Indication: CARDIAC DISORDER
     Dosage: 40 MG, 1X/DAY
     Route: 048
  4. SOTALOL [Concomitant]
     Indication: CARDIAC DISORDER
     Dosage: UNK

REACTIONS (2)
  - Cough [Not Recovered/Not Resolved]
  - Increased upper airway secretion [Not Recovered/Not Resolved]
